FAERS Safety Report 14572924 (Version 13)
Quarter: 2024Q3

REPORT INFORMATION
  Report Type: Spontaneous
  Country: US (occurrence: US)
  Receive Date: 20180226
  Receipt Date: 20240717
  Transmission Date: 20241016
  Serious: Yes (Hospitalization, Other)
  Sender: PFIZER
  Company Number: US-PFIZER INC-2018080288

PATIENT
  Age: 90 Year
  Sex: Female
  Weight: 49 kg

DRUGS (2)
  1. XELJANZ XR [Suspect]
     Active Substance: TOFACITINIB CITRATE
     Indication: Rheumatoid arthritis
     Dosage: 11 MG, ONCE A DAY
     Route: 048
  2. RESTASIS [Concomitant]
     Active Substance: CYCLOSPORINE
     Dosage: UNK

REACTIONS (8)
  - Arterial occlusive disease [Recovered/Resolved]
  - Aortic valve disease [Recovered/Resolved]
  - Limb operation [Unknown]
  - Knee arthroplasty [Unknown]
  - COVID-19 [Recovered/Resolved]
  - Limb injury [Not Recovered/Not Resolved]
  - Fall [Unknown]
  - Dysgraphia [Unknown]

NARRATIVE: CASE EVENT DATE: 20200101
